FAERS Safety Report 6194118-3 (Version None)
Quarter: 2009Q2

REPORT INFORMATION
  Report Type: 
  Country: None (occurrence: None)
  Receive Date: 20090518
  Receipt Date: 20090511
  Transmission Date: 20091009
  Serious: Yes (Other)
  Sender: FDA-Public Use
  Company Number: PHHY2009BR18471

PATIENT
  Age: 84 Year
  Sex: Female
  Weight: 74 kg

DRUGS (9)
  1. ACLASTA [Suspect]
     Indication: OSTEOPOROSIS
     Dosage: UNK
     Dates: start: 20090301
  2. CILOSTAZOL [Concomitant]
     Indication: POOR PERIPHERAL CIRCULATION
     Dosage: 100 MG, 1 TAB MORNING AND NIGHT
     Route: 048
  3. LOSARTAN POTASSIUM [Concomitant]
     Indication: HYPERTENSION
     Dosage: 50 MG, 1 TAB NIGHT
     Route: 048
  4. OMEPRAZOLE [Concomitant]
     Indication: REFLUX OESOPHAGITIS
     Dosage: 20 MG, 1 TAB/DAY
     Route: 048
     Dates: start: 20060101
  5. BUMETANIDE [Concomitant]
     Indication: HYPERTENSION
     Dosage: 1 MG, 1 TAB
     Route: 048
     Dates: start: 20081101
  6. AMLODIPINE [Concomitant]
     Indication: HYPERTENSION
     Dosage: 5 MG, 1 TAB MORNING
     Route: 048
  7. CALCIDIA [Concomitant]
     Indication: BONE DISORDER
     Dosage: 600 MG, 1 TAB AFTER DINNER
     Route: 048
     Dates: start: 20081001
  8. CHONDROITIN W/GLUCOSAMINE [Concomitant]
     Indication: BONE DISORDER
     Dosage: 500/400 MG, 1 TAB/DAY
     Route: 048
     Dates: start: 20081001
  9. SIMVASTATIN [Concomitant]
     Indication: BLOOD CHOLESTEROL
     Dosage: 5 MG, 1 TAB/DAY
     Route: 048
     Dates: start: 20080501

REACTIONS (14)
  - ACCOMMODATION DISORDER [None]
  - ANGINA UNSTABLE [None]
  - ATRIAL FIBRILLATION [None]
  - BACK PAIN [None]
  - BONE PAIN [None]
  - CARDIAC DISORDER [None]
  - DECREASED APPETITE [None]
  - HEART RATE INCREASED [None]
  - NAUSEA [None]
  - NECK PAIN [None]
  - OSTEOARTHRITIS [None]
  - PAIN IN EXTREMITY [None]
  - PYREXIA [None]
  - VOMITING [None]
